FAERS Safety Report 16639097 (Version 2)
Quarter: 2019Q3

REPORT INFORMATION
  Report Type: Report from Study
  Country: CZ (occurrence: CZ)
  Receive Date: 20190726
  Receipt Date: 20190802
  Transmission Date: 20191004
  Serious: Yes (Other)
  Sender: FDA-Public Use
  Company Number: CZ-AMGEN-CZENI2019116930

PATIENT
  Age: 19 Year
  Sex: Female

DRUGS (1)
  1. BLINATUMOMAB [Suspect]
     Active Substance: BLINATUMOMAB
     Indication: B PRECURSOR TYPE ACUTE LEUKAEMIA
     Dosage: 9 MICROGRAM, QD
     Route: 065
     Dates: start: 20160804

REACTIONS (4)
  - Metastases to skin [Unknown]
  - Acute lymphocytic leukaemia recurrent [Unknown]
  - Cytokine release syndrome [Unknown]
  - Lymphadenopathy [Unknown]

NARRATIVE: CASE EVENT DATE: 20160804
